FAERS Safety Report 12394427 (Version 1)
Quarter: 2016Q2

REPORT INFORMATION
  Report Type: Spontaneous
  Country: US (occurrence: US)
  Receive Date: 20160523
  Receipt Date: 20160523
  Transmission Date: 20160815
  Serious: No
  Sender: FDA-Public Use
  Company Number: US-TARO-2015TAR00953

PATIENT
  Sex: Male
  Weight: 72.56 kg

DRUGS (4)
  1. EPIPEN [Concomitant]
     Active Substance: EPINEPHRINE
     Dosage: UNK, AS NEEDED
  2. CHILDRENS CETIRIZINE HYDROCHLORIDE SUGAR FREE GRAPE [Suspect]
     Active Substance: CETIRIZINE HYDROCHLORIDE
     Indication: URTICARIA CHOLINERGIC
     Dosage: 2 TSP, 1X/DAY
     Route: 048
     Dates: start: 2008
  3. PROVENTIL [Concomitant]
     Active Substance: ALBUTEROL
     Dosage: UNK, AS NEEDED
  4. FLOVENT [Concomitant]
     Active Substance: FLUTICASONE PROPIONATE
     Dosage: UNK, AS NEEDED

REACTIONS (2)
  - Off label use [Not Recovered/Not Resolved]
  - Acne [Not Recovered/Not Resolved]

NARRATIVE: CASE EVENT DATE: 2008
